FAERS Safety Report 15471571 (Version 1)
Quarter: 2018Q4

REPORT INFORMATION
  Report Type: Spontaneous
  Country: US (occurrence: US)
  Receive Date: 20181007
  Receipt Date: 20181007
  Transmission Date: 20190205
  Serious: No
  Sender: FDA-Public Use
  Company Number: US-ASTRAZENECA-2018SF25069

PATIENT
  Age: 87 Year
  Sex: Male

DRUGS (2)
  1. BRILINTA [Suspect]
     Active Substance: TICAGRELOR
     Indication: CHEST PAIN
     Dosage: 90.0MG UNKNOWN
     Route: 048
     Dates: start: 20180909
  2. BRILINTA [Suspect]
     Active Substance: TICAGRELOR
     Indication: TROPONIN INCREASED
     Dosage: 90.0MG UNKNOWN
     Route: 048
     Dates: start: 20180909

REACTIONS (3)
  - Off label use [Unknown]
  - Haematochezia [Not Recovered/Not Resolved]
  - Product use in unapproved indication [Unknown]

NARRATIVE: CASE EVENT DATE: 20180925
